FAERS Safety Report 14082337 (Version 2)
Quarter: 2017Q4

REPORT INFORMATION
  Report Type: Report from Study
  Country: JP (occurrence: JP)
  Receive Date: 20171012
  Receipt Date: 20171031
  Transmission Date: 20180321
  Serious: Yes (Hospitalization, Other)
  Sender: FDA-Public Use
  Company Number: JP-TAKEDA-2017TJP021093

PATIENT
  Age: 86 Year
  Sex: Female
  Weight: 43 kg

DRUGS (16)
  1. ADAPTINOL [Concomitant]
     Active Substance: XANTOFYL PALMITATE
     Dosage: 10 MG, UNK
     Route: 048
     Dates: start: 20161208
  2. IXAZOMIB [Suspect]
     Active Substance: IXAZOMIB
     Dosage: 3 MG, 1/WEEK
     Route: 048
     Dates: start: 20170726, end: 20170726
  3. NEXIUM [Concomitant]
     Active Substance: ESOMEPRAZOLE MAGNESIUM
     Dosage: 20 MG, UNK
     Route: 048
     Dates: start: 20170329
  4. CHOLEBINE [Concomitant]
     Active Substance: COLESTILAN CHLORIDE
     Dosage: 3000 MG, UNK
     Route: 048
     Dates: start: 20170720, end: 20170728
  5. WARFARIN K [Concomitant]
     Active Substance: WARFARIN POTASSIUM
     Dosage: 0.75 MG, UNK
     Route: 048
     Dates: start: 20170517, end: 20170729
  6. IXAZOMIB [Suspect]
     Active Substance: IXAZOMIB
     Indication: PLASMA CELL MYELOMA
     Dosage: 2.3 MG, 1/WEEK
     Route: 048
     Dates: start: 20170712, end: 20170719
  7. FEBURIC [Concomitant]
     Active Substance: FEBUXOSTAT
     Dosage: 20 MG, UNK
     Route: 048
     Dates: start: 20170614
  8. FLUCONAZOLE. [Concomitant]
     Active Substance: FLUCONAZOLE
     Dosage: 100 MG, QD
     Route: 048
     Dates: start: 20170510, end: 20170823
  9. ACICLOVIN [Concomitant]
     Active Substance: ACYCLOVIR
     Dosage: 200 MG, UNK
     Route: 048
     Dates: start: 20170603, end: 20170823
  10. BACTRAMIN [Concomitant]
     Active Substance: SULFAMETHOXAZOLE\TRIMETHOPRIM
     Dosage: 0.5 DF, UNK
     Route: 048
     Dates: start: 20170603, end: 20170823
  11. REVLIMID [Concomitant]
     Active Substance: LENALIDOMIDE
     Indication: PLASMA CELL MYELOMA
     Dosage: 15 MG, UNK
     Route: 048
     Dates: start: 20170531
  12. LACTULOSE. [Concomitant]
     Active Substance: LACTULOSE
     Dosage: 6 DF, UNK
     Route: 048
     Dates: start: 20170529
  13. REVLIMID [Concomitant]
     Active Substance: LENALIDOMIDE
     Dosage: 15 MG, QD
     Route: 048
     Dates: start: 20170712, end: 20170729
  14. LENADEX [Concomitant]
     Active Substance: DEXAMETHASONE ACETATE
     Indication: PLASMA CELL MYELOMA
     Dosage: 20 MG, UNK
     Route: 048
     Dates: start: 20170510
  15. LENADEX [Concomitant]
     Active Substance: DEXAMETHASONE ACETATE
     Dosage: 20 MG, UNK
     Route: 048
     Dates: start: 20170531
  16. LENADEX [Concomitant]
     Active Substance: DEXAMETHASONE ACETATE
     Dosage: 20 MG, 1/WEEK
     Route: 048
     Dates: start: 20170712, end: 20170726

REACTIONS (1)
  - Ileus [Recovering/Resolving]

NARRATIVE: CASE EVENT DATE: 20170722
